FAERS Safety Report 15104978 (Version 2)
Quarter: 2018Q3

REPORT INFORMATION
  Report Type: Spontaneous
  Country: BR (occurrence: BR)
  Receive Date: 20180703
  Receipt Date: 20180813
  Transmission Date: 20181010
  Serious: Yes (Other)
  Sender: FDA-Public Use
  Company Number: BR-BIOMARINAP-BR-2018-118928

PATIENT
  Sex: Female
  Weight: 30 kg

DRUGS (1)
  1. VIMIZIM [Suspect]
     Active Substance: ELOSULFASE ALFA
     Indication: MUCOPOLYSACCHARIDOSIS IV
     Dosage: UNK, QW
     Route: 042
     Dates: start: 201203

REACTIONS (4)
  - Respiratory symptom [Not Recovered/Not Resolved]
  - Disease progression [Not Recovered/Not Resolved]
  - Spinal muscular atrophy [Not Recovered/Not Resolved]
  - Scoliosis [Not Recovered/Not Resolved]
